FAERS Safety Report 9349329 (Version 1)
Quarter: 2013Q2

REPORT INFORMATION
  Report Type: Report from Study
  Country: DE (occurrence: DE)
  Receive Date: 20130614
  Receipt Date: 20130614
  Transmission Date: 20140414
  Serious: Yes (Hospitalization)
  Sender: FDA-Public Use
  Company Number: DE-ROCHE-675204

PATIENT
  Age: 29 Year
  Sex: Male
  Weight: 110 kg

DRUGS (7)
  1. PEG-INTERFERON ALFA 2A [Suspect]
     Indication: CHRONIC HEPATITIS C
     Dosage: 16/FEB/2010
     Route: 058
  2. RIBAVIRIN [Suspect]
     Indication: CHRONIC HEPATITIS C
     Dosage: LAST DOSE ON 16/FEB/2010
     Route: 048
  3. DOXEPIN [Concomitant]
     Indication: DEPRESSION
     Route: 048
     Dates: start: 20090421, end: 20100113
  4. TAXILAN [Concomitant]
     Indication: PSYCHOTIC DISORDER
     Dosage: TAXILLAN 100
     Route: 048
  5. SOLIAN [Concomitant]
     Indication: PSYCHOTIC DISORDER
     Route: 048
     Dates: start: 20090421, end: 20100115
  6. BEROTEC [Concomitant]
     Indication: PRODUCT USED FOR UNKNOWN INDICATION
     Dosage: AS NEEDED
     Route: 055
  7. VENLAFAXINE [Concomitant]
     Indication: PSYCHOTIC DISORDER
     Route: 048
     Dates: start: 20091003, end: 20100125

REACTIONS (1)
  - Alcohol abuse [Recovered/Resolved]
